FAERS Safety Report 6244694-7 (Version None)
Quarter: 2009Q2

REPORT INFORMATION
  Report Type: 
  Country: None (occurrence: None)
  Receive Date: 20090625
  Receipt Date: 20090616
  Transmission Date: 20091009
  Serious: Yes (Death)
  Sender: FDA-Public Use
  Company Number: US-PFIZER INC-2009210855

PATIENT
  Sex: Male

DRUGS (1)
  1. SUTENT [Suspect]
     Indication: GASTROINTESTINAL STROMAL TUMOUR
     Dosage: 12.5 MG, 3X/DAY 4 WKS ON 2 OFF
     Dates: start: 20081201

REACTIONS (2)
  - DISEASE PROGRESSION [None]
  - GASTROINTESTINAL STROMAL TUMOUR [None]
